FAERS Safety Report 12041714 (Version 2)
Quarter: 2016Q1

REPORT INFORMATION
  Report Type: Spontaneous
  Country: US (occurrence: US)
  Receive Date: 20160208
  Receipt Date: 20160325
  Transmission Date: 20160526
  Serious: Yes (Hospitalization)
  Sender: FDA-Public Use
  Company Number: US-THE MEDICINES COMPANY-US-MDCO-15-00516

PATIENT
  Age: 58 Year
  Sex: Male
  Weight: 111.13 kg

DRUGS (2)
  1. OXYCODONE [Concomitant]
     Active Substance: OXYCODONE
     Indication: PRODUCT USED FOR UNKNOWN INDICATION
  2. ORBACTIV [Suspect]
     Active Substance: ORITAVANCIN
     Indication: STAPHYLOCOCCAL ABSCESS
     Dosage: NOT REPORTED
     Route: 041

REACTIONS (5)
  - Infusion site extravasation [Recovered/Resolved]
  - Infusion site erythema [Unknown]
  - Musculoskeletal disorder [Recovered/Resolved]
  - Infusion site hypoaesthesia [Recovered/Resolved]
  - Infusion site swelling [Unknown]

NARRATIVE: CASE EVENT DATE: 20151104
